FAERS Safety Report 6383235-0 (Version None)
Quarter: 2009Q3

REPORT INFORMATION
  Report Type: 
  Country: None (occurrence: None)
  Receive Date: 20090929
  Receipt Date: 20090918
  Transmission Date: 20100115
  Serious: Yes (Other)
  Sender: FDA-Public Use
  Company Number: CERZ-1000933

PATIENT
  Age: 56 Year
  Sex: Male
  Weight: 80.3 kg

DRUGS (1)
  1. CEREZYME [Suspect]
     Indication: GAUCHER'S DISEASE
     Dosage: 4400 U, Q2W, INTRAVENOUS
     Route: 042
     Dates: start: 20081202

REACTIONS (3)
  - ANAEMIA [None]
  - MALAISE [None]
  - PLATELET COUNT DECREASED [None]
